FAERS Safety Report 5903120-5 (Version None)
Quarter: 2008Q3

REPORT INFORMATION
  Report Type: 
  Country: None (occurrence: None)
  Receive Date: 20080930
  Receipt Date: 20080924
  Transmission Date: 20090109
  Serious: Yes (Hospitalization)
  Sender: FDA-Public Use
  Company Number: US-TYCO HEALTHCARE/MALLINCKRODT-T200801457

PATIENT

DRUGS (3)
  1. ACETAMINOPHEN AND OXYCODONE HCL [Suspect]
     Indication: OSTEOARTHRITIS
     Dosage: 5/325 MG QID
  2. FENTANYL [Concomitant]
     Indication: OSTEOARTHRITIS
     Dosage: 150 MG, Q3DAYS
     Route: 062
  3. DIAZEPAM [Concomitant]
     Dosage: 5 MG, QHS
     Route: 048

REACTIONS (4)
  - CONFUSIONAL STATE [None]
  - DRUG SCREEN NEGATIVE [None]
  - DYSKINESIA [None]
  - WITHDRAWAL SYNDROME [None]
